FAERS Safety Report 21518494 (Version 3)
Quarter: 2022Q4

REPORT INFORMATION
  Report Type: Report from Study
  Country: US (occurrence: US)
  Receive Date: 20221028
  Receipt Date: 20221219
  Transmission Date: 20230113
  Serious: Yes (Hospitalization)
  Sender: FDA-Public Use
  Company Number: US-GBT-017456

PATIENT
  Age: 13 Year
  Sex: Male

DRUGS (7)
  1. OXBRYTA [Suspect]
     Active Substance: VOXELOTOR
     Indication: Sickle cell disease
     Dates: start: 20200818
  2. cholealciferol-vitamin D3 [Concomitant]
     Indication: Vitamin D deficiency
     Dosage: ONGOING
     Dates: start: 20200306
  3. FOLIC ACID [Concomitant]
     Active Substance: FOLIC ACID
     Indication: Sickle cell disease
     Route: 048
     Dates: start: 20140320
  4. HYDROcodone-acetaminophen (HYCET) [Concomitant]
     Indication: Sickle cell disease
     Dosage: TIME INTERVAL: 0.16666667 DAYS
     Route: 048
     Dates: start: 20190225, end: 20220318
  5. hydroxyurea (HYDREA) [Concomitant]
     Indication: Sickle cell disease
     Route: 048
  6. HYDROcodone-acetaminophen (Lorcet) [Concomitant]
     Route: 048
     Dates: start: 20220318
  7. AMOXICILLIN [Concomitant]
     Active Substance: AMOXICILLIN
     Indication: Sickle cell disease
     Route: 048
     Dates: start: 20120917

REACTIONS (1)
  - Sickle cell anaemia with crisis [Recovered/Resolved]

NARRATIVE: CASE EVENT DATE: 20220102
